FAERS Safety Report 21833091 (Version 1)
Quarter: 2023Q1

REPORT INFORMATION
  Report Type: Spontaneous
  Country: US (occurrence: US)
  Receive Date: 20230106
  Receipt Date: 20230106
  Transmission Date: 20230418
  Serious: No
  Sender: FDA-Public Use
  Company Number: US-ALLERGAN-2241594US

PATIENT
  Age: 33 Year
  Sex: Female
  Weight: 72.57 kg

DRUGS (5)
  1. QULIPTA [Suspect]
     Active Substance: ATOGEPANT
     Indication: Product used for unknown indication
     Dosage: 10 MG, QD
     Dates: start: 20221114, end: 20221122
  2. HAILEY 24 FE [Concomitant]
     Active Substance: ETHINYL ESTRADIOL\NORETHINDRONE ACETATE
     Indication: Contraception
  3. OMEPRAZOLE [Concomitant]
     Active Substance: OMEPRAZOLE
     Indication: Gastrooesophageal reflux disease
  4. METHOCARBAMOL [Concomitant]
     Active Substance: METHOCARBAMOL
     Indication: Muscle relaxant therapy
  5. GLYCOPYRROLATE [Concomitant]
     Active Substance: GLYCOPYRROLATE
     Indication: Hyperhidrosis

REACTIONS (3)
  - Migraine [Unknown]
  - Product use issue [Unknown]
  - Headache [Not Recovered/Not Resolved]

NARRATIVE: CASE EVENT DATE: 20221128
